FAERS Safety Report 4582496-8 (Version None)
Quarter: 2005Q1

REPORT INFORMATION
  Report Type: 
  Country: None (occurrence: None)
  Receive Date: 20050211
  Receipt Date: 20050211
  Transmission Date: 20050727
  Serious: Yes (Other)
  Sender: FDA-Public Use
  Company Number: None

PATIENT
  Age: 21 Year
  Sex: Male
  Weight: 124.7392 kg

DRUGS (1)
  1. CARBAMAZEPINE [Suspect]
     Dosage: 1200 MG QD ORAL
     Route: 048

REACTIONS (1)
  - LABORATORY TEST ABNORMAL [None]
